FAERS Safety Report 6476639-9 (Version None)
Quarter: 2009Q4

REPORT INFORMATION
  Report Type: 
  Country: None (occurrence: None)
  Receive Date: 20091202
  Receipt Date: 20091118
  Transmission Date: 20100525
  Serious: Yes (Other)
  Sender: FDA-Public Use
  Company Number: 1000010447

PATIENT
  Age: 64 Year
  Sex: Female

DRUGS (3)
  1. ESCITALOPRAM [Suspect]
     Indication: DEPRESSION
     Dosage: 10 MG (10 MG,1 IN 1 D),ORAL
     Route: 048
     Dates: start: 20091108
  2. NEXIUM [Concomitant]
  3. STILNOX [Concomitant]

REACTIONS (4)
  - CHILLS [None]
  - HYPERHIDROSIS [None]
  - HYPOTHERMIA [None]
  - SINUSITIS [None]
